FAERS Safety Report 16928602 (Version 1)
Quarter: 2019Q4

REPORT INFORMATION
  Report Type: Spontaneous
  Country: GB (occurrence: GB)
  Receive Date: 20191017
  Receipt Date: 20191017
  Transmission Date: 20200122
  Serious: Yes (Hospitalization, Other)
  Sender: FDA-Public Use
  Company Number: GB-AUROBINDO-AUR-APL-2019-066806

PATIENT
  Age: 56 Year
  Sex: Female

DRUGS (2)
  1. ALENDRONIC ACID TABLETS [Suspect]
     Active Substance: ALENDRONIC ACID
     Indication: OSTEOPOROSIS
     Dosage: UNK
     Route: 048
  2. ALENDRONIC ACID TABLETS [Suspect]
     Active Substance: ALENDRONIC ACID
     Indication: CHRONIC KIDNEY DISEASE

REACTIONS (4)
  - Femur fracture [Recovered/Resolved]
  - Bone hypertrophy [Recovered/Resolved]
  - Stress fracture [Recovered/Resolved]
  - Atypical femur fracture [Recovered/Resolved]
